FAERS Safety Report 6005487-9 (Version None)
Quarter: 2008Q4

REPORT INFORMATION
  Report Type: 
  Country: None (occurrence: None)
  Receive Date: 20081215
  Receipt Date: 20081209
  Transmission Date: 20090506
  Serious: Yes (Life-Threatening)
  Sender: FDA-Public Use
  Company Number: 2008-188270-NL

PATIENT

DRUGS (2)
  1. VECURONIUM BROMIDE [Suspect]
  2. NALOXONE HYDROCHLORIDE [Suspect]

REACTIONS (5)
  - CARDIAC ARREST [None]
  - CONFUSIONAL STATE [None]
  - MEDICATION ERROR [None]
  - RESPIRATORY ARREST [None]
  - WRONG DRUG ADMINISTERED [None]
